FAERS Safety Report 16053054 (Version 2)
Quarter: 2019Q1

REPORT INFORMATION
  Report Type: Spontaneous
  Country: US (occurrence: US)
  Receive Date: 20190308
  Receipt Date: 20190327
  Transmission Date: 20190418
  Serious: Yes (Hospitalization, Other)
  Sender: FDA-Public Use
  Company Number: US-BRACCO-2019US00974

PATIENT
  Age: 49 Year
  Sex: Female

DRUGS (6)
  1. SALINE                             /00075401/ [Concomitant]
     Active Substance: SODIUM CHLORIDE
     Dosage: 2 ML
     Dates: start: 20190225, end: 20190225
  2. LIPITOR [Concomitant]
     Active Substance: ATORVASTATIN CALCIUM
     Dosage: UNK
  3. GABAPENTIN. [Concomitant]
     Active Substance: GABAPENTIN
     Dosage: UNK
  4. ELIQUIS [Concomitant]
     Active Substance: APIXABAN
     Dosage: UNK
  5. LOPRESSOR [Concomitant]
     Active Substance: METOPROLOL TARTRATE
     Dosage: UNK
  6. LUMASON [Suspect]
     Active Substance: SULFUR HEXAFLUORIDE
     Indication: STRESS ECHOCARDIOGRAM
     Dosage: 3 ML, SINGLE
     Route: 040
     Dates: start: 20190225, end: 20190225

REACTIONS (1)
  - Stress cardiomyopathy [Recovering/Resolving]

NARRATIVE: CASE EVENT DATE: 20190225
